FAERS Safety Report 5750270-2 (Version None)
Quarter: 2008Q2

REPORT INFORMATION
  Report Type: 
  Country: None (occurrence: None)
  Receive Date: 20080527
  Receipt Date: 20080520
  Transmission Date: 20081010
  Serious: Yes (Death)
  Sender: FDA-Public Use
  Company Number: US-GENENTECH-254757

PATIENT
  Sex: Female

DRUGS (15)
  1. RANIBIZUMAB [Suspect]
     Indication: MACULAR DEGENERATION
     Route: 031
     Dates: start: 20060810, end: 20070717
  2. SYNTHROID [Concomitant]
     Indication: HYPOTHYROIDISM
     Dates: start: 20020701, end: 20080118
  3. FOLIC ACID [Concomitant]
     Indication: MEDICAL DIET
     Dates: start: 19930101, end: 20080118
  4. TYLENOL [Concomitant]
     Indication: ARTHRALGIA
     Dosage: UNK, PRN
     Dates: end: 20080118
  5. PROTONIX [Concomitant]
     Indication: OESOPHAGITIS
     Dates: start: 20070925, end: 20080118
  6. ARICEPT [Concomitant]
     Indication: DEMENTIA
     Dates: start: 20070925, end: 20080118
  7. FUROSEMIDE [Concomitant]
     Indication: OEDEMA PERIPHERAL
     Dates: start: 20070925, end: 20080118
  8. HALDOL [Concomitant]
     Indication: ANXIETY
     Dates: start: 20071201, end: 20080118
  9. OXYCODONE HCL [Concomitant]
     Indication: ARTHRALGIA
     Dates: start: 20071101, end: 20080118
  10. COLACE [Concomitant]
     Indication: CONSTIPATION
     Dates: start: 20060101, end: 20080118
  11. SENOKOT [Concomitant]
     Indication: CONSTIPATION
     Dates: start: 20071201, end: 20080118
  12. SORBITOL [Concomitant]
     Indication: CONSTIPATION
     Dosage: UNK, UNK
     Dates: start: 20071201, end: 20080118
  13. CARAFATE [Concomitant]
     Indication: GASTRIC HAEMORRHAGE
     Dates: start: 20080112, end: 20080118
  14. BISACODYL [Concomitant]
     Indication: CONSTIPATION
     Dates: start: 20071201, end: 20080118
  15. COMPAZINE [Concomitant]
     Indication: NAUSEA
     Dates: start: 20080112, end: 20080118

REACTIONS (1)
  - DEATH [None]
